FAERS Safety Report 8490304-8 (Version None)
Quarter: 2012Q3

REPORT INFORMATION
  Report Type: 
  Country: None (occurrence: None)
  Receive Date: 20120705
  Receipt Date: 20120625
  Transmission Date: 20120928
  Serious: Yes (Death, Hospitalization)
  Sender: FDA-Public Use
  Company Number: MX-SANOFI-AVENTIS-2012SA045495

PATIENT
  Age: 69 Year
  Sex: Female

DRUGS (3)
  1. LANTUS [Suspect]
     Dosage: DOSE: 5 IU - 15 IU/ A DAY (DOSE DEPENDING ON GLUCOSE LEVELS)
     Route: 058
     Dates: start: 20070101
  2. LANTUS [Suspect]
     Indication: TYPE 2 DIABETES MELLITUS
     Dosage: DOSE: 5 IU - 15 IU/ A DAY (DOSE DEPENDING ON GLUCOSE LEVELS)
     Route: 058
     Dates: start: 20070101, end: 20110204
  3. ANTIHYPERTENSIVES [Concomitant]
     Dates: end: 20110204

REACTIONS (2)
  - HYPERGLYCAEMIA [None]
  - DIABETIC COMPLICATION [None]
